FAERS Safety Report 6293616-1 (Version None)
Quarter: 2009Q3

REPORT INFORMATION
  Report Type: 
  Country: None (occurrence: None)
  Receive Date: 20090803
  Receipt Date: 20090724
  Transmission Date: 20100115
  Serious: Yes (Hospitalization, Other)
  Sender: FDA-Public Use
  Company Number: DE-KINGPHARMUSA00001-K200900878

PATIENT
  Sex: Female

DRUGS (4)
  1. EPIPEN [Suspect]
     Indication: DRUG HYPERSENSITIVITY
     Dosage: UNK
     Dates: start: 20090403, end: 20090403
  2. SEPTRA [Concomitant]
     Indication: SINUSITIS
     Dosage: 1 DF, UNK
     Dates: start: 20090403
  3. AVAPRO [Concomitant]
     Route: 048
  4. BETASERON [Concomitant]
     Indication: RELAPSING-REMITTING MULTIPLE SCLEROSIS
     Dosage: 8 MIU, QD
     Route: 058
     Dates: start: 20060223

REACTIONS (2)
  - MYOCARDIAL INFARCTION [None]
  - OVERDOSE [None]
